FAERS Safety Report 16624463 (Version 4)
Quarter: 2021Q1

REPORT INFORMATION
  Report Type: Spontaneous
  Country: US (occurrence: US)
  Receive Date: 20190724
  Receipt Date: 20210319
  Transmission Date: 20210419
  Serious: Yes (Other)
  Sender: FDA-Public Use
  Company Number: US-GILEAD-2019-0419353

PATIENT
  Age: 61 Year
  Sex: Male
  Weight: 86.17 kg

DRUGS (10)
  1. TRUVADA [Suspect]
     Active Substance: EMTRICITABINE\TENOFOVIR DISOPROXIL FUMARATE
     Indication: HIV INFECTION
     Dosage: UNK
     Route: 048
     Dates: start: 20081129, end: 20160810
  2. ACETAMINOPHEN. [Concomitant]
     Active Substance: ACETAMINOPHEN
  3. IBUPROFEN. [Concomitant]
     Active Substance: IBUPROFEN
  4. ASPIRIN (E.C.) [Concomitant]
     Active Substance: ASPIRIN
  5. VIREAD [Suspect]
     Active Substance: TENOFOVIR DISOPROXIL FUMARATE
     Dosage: UNK
     Route: 048
     Dates: start: 2003, end: 200811
  6. VIREAD [Suspect]
     Active Substance: TENOFOVIR DISOPROXIL FUMARATE
     Indication: HIV INFECTION
     Dosage: UNK
     Route: 048
     Dates: start: 2013, end: 2018
  7. DESCOVY [Concomitant]
     Active Substance: EMTRICITABINE\TENOFOVIR ALAFENAMIDE FUMARATE
  8. AMOXICILLIN. [Concomitant]
     Active Substance: AMOXICILLIN
  9. FLOMAX [MORNIFLUMATE] [Concomitant]
     Active Substance: MORNIFLUMATE
  10. TIVICAY [Concomitant]
     Active Substance: DOLUTEGRAVIR SODIUM

REACTIONS (7)
  - Chronic kidney disease [Unknown]
  - Pain [Unknown]
  - Renal failure [Unknown]
  - Renal injury [Not Recovered/Not Resolved]
  - Blood creatine increased [Unknown]
  - Osteopenia [Unknown]
  - Emotional distress [Unknown]

NARRATIVE: CASE EVENT DATE: 2018
